FAERS Safety Report 7391634-3 (Version None)
Quarter: 2011Q1

REPORT INFORMATION
  Report Type: 
  Country: None (occurrence: None)
  Receive Date: 20110324
  Receipt Date: 20110310
  Transmission Date: 20110831
  Serious: Yes (Disabling, Other)
  Sender: FDA-Public Use
  Company Number: JP-2011-10020

PATIENT
  Age: 61 Year
  Sex: Male
  Weight: 59 kg

DRUGS (15)
  1. ASPIRIN [Concomitant]
  2. OMEPRAZOLE [Concomitant]
  3. MILLIS (GLYCERYL TRINITRATE) [Concomitant]
  4. PIMOBENDAN [Concomitant]
  5. GRACEVIT (SITAFLOXACIN HYDRATE) [Concomitant]
  6. TICLOPIDINE HCL [Concomitant]
  7. LISINOPRIL [Concomitant]
  8. TANADOPA (DOCARPAMINE) [Concomitant]
  9. SIMVASTATIN [Concomitant]
  10. MOXIFLOXACIN HYDROCHLORIDE [Concomitant]
  11. SAMSCA [Suspect]
     Indication: CARDIAC FAILURE
     Dosage: 7.5 MG MILLIGRAM(S), QD, ORAL; 15 MG, MILLIGRAM(S), QD, ORAL;
     Dates: start: 20110105, end: 20110105
  12. SAMSCA [Suspect]
     Indication: CARDIAC FAILURE
     Dosage: 7.5 MG MILLIGRAM(S), QD, ORAL; 15 MG, MILLIGRAM(S), QD, ORAL;
     Dates: start: 20110106, end: 20110111
  13. TAZOBACTAM:PIERACILLIN [Concomitant]
  14. ALDACTONE [Concomitant]
  15. FORSENID (SENNOSIDE) [Concomitant]

REACTIONS (5)
  - HYPERNATRAEMIA [None]
  - BLOOD GLUCOSE INCREASED [None]
  - URINE OUTPUT INCREASED [None]
  - HALLUCINATION, VISUAL [None]
  - ALTERED STATE OF CONSCIOUSNESS [None]
